FAERS Safety Report 24732539 (Version 1)
Quarter: 2024Q4

REPORT INFORMATION
  Report Type: Spontaneous
  Country: DE (occurrence: DE)
  Receive Date: 20241213
  Receipt Date: 20241213
  Transmission Date: 20250114
  Serious: Yes (Hospitalization, Disabling, Other)
  Sender: CLINIGEN
  Company Number: None

PATIENT
  Age: 52 Year
  Sex: Female

DRUGS (21)
  1. FOSCARNET SODIUM [Suspect]
     Active Substance: FOSCARNET SODIUM
     Indication: Antiviral prophylaxis
     Dosage: 180 MILLIGRAM/KILOGRAM, QD
     Route: 065
     Dates: start: 201309
  2. ALEMTUZUMAB [Suspect]
     Active Substance: ALEMTUZUMAB
     Indication: Prophylaxis against transplant rejection
     Dosage: D 0 AND 1/30 MG,UNK/ON D-0 AND D-1.
     Route: 065
     Dates: end: 201305
  3. ALEMTUZUMAB [Suspect]
     Active Substance: ALEMTUZUMAB
     Indication: Immunosuppression
     Dosage: D 0 AND 1/30 MG,UNK/ON D-0 AND D-1.
     Route: 065
     Dates: end: 201305
  4. CASPOFUNGIN [Suspect]
     Active Substance: CASPOFUNGIN
     Indication: Product used for unknown indication
     Dosage: UNKNOWN
     Route: 065
     Dates: start: 201307
  5. EVEROLIMUS [Suspect]
     Active Substance: EVEROLIMUS
     Indication: Immunosuppression
     Dosage: TARGET TROUGH LEVEL2-3 NG/MICROLITRE
     Route: 065
     Dates: start: 201309, end: 201312
  6. GANCICLOVIR [Suspect]
     Active Substance: GANCICLOVIR
     Indication: Antiviral prophylaxis
     Dosage: 5 MG/KG,QD
     Route: 042
     Dates: start: 201307, end: 201312
  7. GANCICLOVIR [Suspect]
     Active Substance: GANCICLOVIR
     Indication: Antiviral prophylaxis
  8. INFLIXIMAB [Suspect]
     Active Substance: INFLIXIMAB
     Indication: Immunosuppression
     Dosage: 5 MG/KG, ONCE
     Route: 042
     Dates: start: 201310
  9. MYCOPHENOLATE MOFETIL [Suspect]
     Active Substance: MYCOPHENOLATE MOFETIL
     Indication: Prophylaxis against transplant rejection
     Dosage: 2000 MG / DAY
     Route: 065
     Dates: end: 201305
  10. MYCOPHENOLATE MOFETIL [Suspect]
     Active Substance: MYCOPHENOLATE MOFETIL
     Indication: Immunosuppression
  11. TACROLIMUS [Suspect]
     Active Substance: TACROLIMUS
     Indication: Prophylaxis against transplant rejection
     Dosage: TARGET TROUGH LEVEL 3-4 NG/MICROLITRE/INITIAL TARGET LEVEL 8-10 AND 6-7 NG/MCL THEREAFTER/8-10 AND 6
     Route: 065
     Dates: start: 201309, end: 201312
  12. TACROLIMUS [Suspect]
     Active Substance: TACROLIMUS
     Indication: Immunosuppression
     Dosage: INITIAL TARGET TROUGH LEVEL 8-10 AND 6-7 NG/MICROLITER THEREAFTER
     Dates: end: 201305
  13. TACROLIMUS [Suspect]
     Active Substance: TACROLIMUS
     Dosage: UNK~TARGET TROUGH LEVEL 3-4 NG/ MICROLITER
     Dates: start: 201306, end: 201308
  14. PREDNISOLONE [Suspect]
     Active Substance: PREDNISOLONE
     Indication: Prophylaxis against transplant rejection
     Dosage: 5 MILLIGRAM ~STARTED AT1000 MG INTRAOPERATIVELY
     Route: 050
  15. PREDNISOLONE [Suspect]
     Active Substance: PREDNISOLONE
     Indication: Immunosuppression
     Dosage: 250 MILLIGRAM, QD
     Dates: start: 201310, end: 201310
  16. PREDNISOLONE [Suspect]
     Active Substance: PREDNISOLONE
     Dosage: 1000 INTERNATIONAL UNIT, INTRAOPERATIVELY
     Route: 065
  17. PREDNISOLONE [Suspect]
     Active Substance: PREDNISOLONE
     Dosage: 1000 MILLIGRAM, FOR 3 DAYS
     Route: 065
     Dates: start: 201305
  18. VALGANCICLOVIR [Suspect]
     Active Substance: VALGANCICLOVIR
     Indication: Cytomegalovirus infection
     Dosage: UNKNOWN
     Route: 065
     Dates: start: 201312
  19. VALGANCICLOVIR [Suspect]
     Active Substance: VALGANCICLOVIR
     Indication: Antiviral prophylaxis
     Dosage: UNKNOWN
     Route: 065
     Dates: start: 201307
  20. VALGANCICLOVIR [Suspect]
     Active Substance: VALGANCICLOVIR
     Dosage: FOR 100 DAYS./900 MG,QD
     Route: 065
  21. GANCICLOVIR [Concomitant]
     Active Substance: GANCICLOVIR
     Indication: Antiviral prophylaxis
     Dosage: 5 MILLIGRAM/KILOGRAM, QD
     Route: 042

REACTIONS (13)
  - Odynophagia [Unknown]
  - Cytomegalovirus oesophagitis [Recovered/Resolved]
  - Leukaemia [Unknown]
  - Transplant rejection [Unknown]
  - Organ failure [Unknown]
  - Cytomegalovirus oesophagitis [Recovered/Resolved]
  - Cytomegalovirus infection [Recovered/Resolved]
  - Oesophageal candidiasis [Recovered/Resolved]
  - Cytomegalovirus gastritis [Recovered/Resolved]
  - Oesophagitis ulcerative [Unknown]
  - Vomiting [Unknown]
  - Pyrexia [Unknown]
  - Diarrhoea [Unknown]
